FAERS Safety Report 13569702 (Version 4)
Quarter: 2017Q2

REPORT INFORMATION
  Report Type: Spontaneous
  Country: CA (occurrence: CA)
  Receive Date: 20170522
  Receipt Date: 20170608
  Transmission Date: 20170830
  Serious: Yes (Hospitalization)
  Sender: FDA-Public Use
  Company Number: PHHY2017CA072030

PATIENT
  Age: 61 Year
  Sex: Female

DRUGS (4)
  1. PREDNISONE. [Suspect]
     Active Substance: PREDNISONE
     Indication: RENAL TRANSPLANT
     Route: 065
  2. MYCOPHENOLIC ACID. [Suspect]
     Active Substance: MYCOPHENOLIC ACID
     Indication: RENAL TRANSPLANT
     Route: 065
  3. TACROLIMUS. [Suspect]
     Active Substance: TACROLIMUS
     Indication: RENAL TRANSPLANT
     Route: 065
  4. CIPROFLOXACIN. [Concomitant]
     Active Substance: CIPROFLOXACIN
     Indication: PRODUCT USED FOR UNKNOWN INDICATION
     Route: 005

REACTIONS (11)
  - Bone marrow granuloma [Unknown]
  - Asthenia [Unknown]
  - Enterocolitis [Unknown]
  - Mycobacterium avium complex infection [Unknown]
  - Pulmonary cavitation [Unknown]
  - Splenomegaly [Unknown]
  - Inflammatory pseudotumour [Unknown]
  - Lymphadenopathy [Unknown]
  - Cough [Unknown]
  - Headache [Unknown]
  - Intestinal obstruction [Unknown]
